FAERS Safety Report 20641523 (Version 1)
Quarter: 2022Q1

REPORT INFORMATION
  Report Type: Report from Study
  Country: JP (occurrence: JP)
  Receive Date: 20220328
  Receipt Date: 20220328
  Transmission Date: 20220423
  Serious: Yes (Other)
  Sender: FDA-Public Use
  Company Number: JP-VIIV HEALTHCARE LIMITED-JP2019JPN115162

PATIENT
  Age: 40 Year
  Sex: Male

DRUGS (31)
  1. DOLUTEGRAVIR [Suspect]
     Active Substance: DOLUTEGRAVIR
     Indication: HIV infection
     Dosage: 50 MG, 1D
     Route: 048
     Dates: start: 20180224
  2. DESCOVY [Suspect]
     Active Substance: EMTRICITABINE\TENOFOVIR ALAFENAMIDE FUMARATE
     Indication: HIV infection
     Dosage: 1 DF, 1D
     Route: 048
     Dates: start: 20180224
  3. AMOXICILLIN [Suspect]
     Active Substance: AMOXICILLIN
     Indication: Syphilis
     Dosage: UNK
     Route: 065
     Dates: start: 20191223, end: 20191224
  4. AMOXICILLIN [Suspect]
     Active Substance: AMOXICILLIN
     Dosage: UNK
     Route: 065
     Dates: start: 20220129
  5. TRIMEBUTINE [Suspect]
     Active Substance: TRIMEBUTINE
     Indication: Gastroenteritis
     Dosage: UNK
     Route: 065
     Dates: start: 20191223, end: 20191224
  6. BEPOTASTINE BESYLATE [Concomitant]
     Active Substance: BEPOTASTINE BESYLATE
     Indication: Seasonal allergy
     Dosage: UNK
     Dates: start: 20180317, end: 20180420
  7. EPINASTINE [Concomitant]
     Active Substance: EPINASTINE
     Indication: Seasonal allergy
     Dosage: UNK
     Dates: start: 20180421, end: 20180424
  8. XYZAL [Concomitant]
     Active Substance: LEVOCETIRIZINE DIHYDROCHLORIDE
     Indication: Seasonal allergy
     Dosage: UNK
     Dates: start: 20180425, end: 20180524
  9. XYZAL [Concomitant]
     Active Substance: LEVOCETIRIZINE DIHYDROCHLORIDE
     Indication: Asthma
  10. THEOPHYLLINE [Concomitant]
     Active Substance: THEOPHYLLINE
     Indication: Asthma
     Dosage: UNK
     Dates: start: 20180425, end: 20180916
  11. SINGULAIR [Concomitant]
     Active Substance: MONTELUKAST SODIUM
     Indication: Asthma
     Dosage: UNK
     Dates: start: 20180425, end: 20180916
  12. SINGULAIR [Concomitant]
     Active Substance: MONTELUKAST SODIUM
     Dosage: UNK
     Dates: start: 20190810, end: 20190824
  13. SINGULAIR [Concomitant]
     Active Substance: MONTELUKAST SODIUM
     Dosage: UNK
     Dates: start: 20210703, end: 20210902
  14. MUCOSAL [Concomitant]
     Indication: Asthma
     Dosage: UNK
     Dates: start: 20180425, end: 20180916
  15. DIQUAS OPHTHALMIC SOLUTION [Concomitant]
     Dosage: UNK
     Dates: start: 20180723, end: 20190423
  16. RUPAFIN [Concomitant]
     Active Substance: RUPATADINE FUMARATE
     Dosage: UNK
     Dates: start: 20190226, end: 20190423
  17. RUPAFIN [Concomitant]
     Active Substance: RUPATADINE FUMARATE
     Dosage: UNK
     Dates: start: 20200217, end: 20200416
  18. ALLERMIST NASAL [Concomitant]
     Indication: Seasonal allergy
     Dosage: UNK
     Route: 045
     Dates: start: 20190226, end: 20190423
  19. ALLERMIST NASAL [Concomitant]
     Dosage: UNK
     Route: 045
     Dates: start: 20210222, end: 20210902
  20. ALLERMIST NASAL [Concomitant]
     Dosage: UNK
     Route: 045
     Dates: start: 20220129
  21. LIVOSTIN NASAL SOLUTION (LEVOCABASTINE HYDROCHLORIDE) [Concomitant]
     Dosage: UNK
     Dates: start: 20190226, end: 20190423
  22. ALESION OPHTHALMIC SOLUTION 0.05% [Concomitant]
     Indication: Seasonal allergy
     Dosage: UNK
     Dates: start: 20190226, end: 20190423
  23. ALESION OPHTHALMIC SOLUTION 0.05% [Concomitant]
     Dosage: UNK
     Dates: start: 20210222, end: 20210902
  24. FLUTICASONE FUROATE\VILANTEROL TRIFENATATE [Concomitant]
     Active Substance: FLUTICASONE FUROATE\VILANTEROL TRIFENATATE
     Dosage: 200 ?G
     Route: 055
     Dates: start: 20190810, end: 20190824
  25. THEO-DUR [Concomitant]
     Active Substance: THEOPHYLLINE ANHYDROUS
     Dosage: UNK
     Dates: start: 20190810, end: 20190824
  26. THEO-DUR [Concomitant]
     Active Substance: THEOPHYLLINE ANHYDROUS
     Dosage: UNK
     Dates: start: 20210703, end: 20210902
  27. FLUTICASONE PROPIONATE\FORMOTEROL FUMARATE [Concomitant]
     Active Substance: FLUTICASONE PROPIONATE\FORMOTEROL FUMARATE
     Indication: Asthma
     Dosage: UNK
     Dates: start: 20200415
  28. CRESTOR [Concomitant]
     Active Substance: ROSUVASTATIN CALCIUM
     Indication: Hyperlipidaemia
     Dosage: UNK
     Dates: start: 20210112
  29. ALLELOCK [Concomitant]
     Active Substance: OLOPATADINE HYDROCHLORIDE
     Indication: Seasonal allergy
     Dosage: UNK
     Dates: start: 20210222, end: 20210421
  30. CELESTAMINE [Concomitant]
     Active Substance: BETAMETHASONE\DEXCHLORPHENIRAMINE MALEATE
     Indication: Seasonal allergy
     Dosage: UNK
     Dates: start: 20210222, end: 20210421
  31. DESLORATADINE [Concomitant]
     Active Substance: DESLORATADINE
     Dosage: UNK
     Dates: start: 20210703, end: 20210902

REACTIONS (8)
  - Tinea pedis [Recovering/Resolving]
  - Dermatophytosis of nail [Recovering/Resolving]
  - Gastroenteritis [Recovering/Resolving]
  - Drug eruption [Recovering/Resolving]
  - Haemorrhoids [Recovering/Resolving]
  - Syphilis [Not Recovered/Not Resolved]
  - Pharyngeal chlamydia infection [Recovering/Resolving]
  - Syphilis [Recovering/Resolving]

NARRATIVE: CASE EVENT DATE: 20180425
